FAERS Safety Report 11587963 (Version 2)
Quarter: 2016Q1

REPORT INFORMATION
  Report Type: Report from Study
  Country: CN (occurrence: CN)
  Receive Date: 20151002
  Receipt Date: 20160309
  Transmission Date: 20160525
  Serious: Yes (Other)
  Sender: FDA-Public Use
  Company Number: CN-ROCHE-1633794

PATIENT
  Sex: Male
  Weight: 61 kg

DRUGS (1)
  1. AVASTIN [Suspect]
     Active Substance: BEVACIZUMAB
     Indication: RECTAL CANCER
     Route: 041
     Dates: start: 20121220

REACTIONS (5)
  - Post procedural infection [Unknown]
  - Urinary tract infection [Unknown]
  - Cystitis [Unknown]
  - Ureteral disorder [Unknown]
  - Pyrexia [Unknown]
